FAERS Safety Report 5622216-9 (Version None)
Quarter: 2008Q1

REPORT INFORMATION
  Report Type: 
  Country: None (occurrence: None)
  Receive Date: 20080114
  Receipt Date: 20071005
  Transmission Date: 20080703
  Serious: Yes (Hospitalization)
  Sender: FDA-Public Use
  Company Number: A03200705914

PATIENT
  Age: 85 Year
  Sex: Male

DRUGS (7)
  1. PLAVIX [Suspect]
     Indication: TRANSIENT ISCHAEMIC ATTACK
     Dosage: 75 MG, QD, ORAL
     Route: 048
     Dates: start: 20060101
  2. LOSARTAN POTASSIUM [Concomitant]
  3. DUTASTERIDE [Concomitant]
  4. TAMSULOSIN HCL [Concomitant]
  5. ACETYLSALICYLIC ACID SRT [Concomitant]
  6. HYDROCHLOROTHIAZIDE [Concomitant]
  7. ALPRAZOLAM [Concomitant]

REACTIONS (1)
  - MYOCARDIAL INFARCTION [None]
